FAERS Safety Report 15655509 (Version 1)
Quarter: 2018Q4

REPORT INFORMATION
  Report Type: Spontaneous
  Country: US (occurrence: US)
  Receive Date: 20181126
  Receipt Date: 20181126
  Transmission Date: 20190205
  Serious: No
  Sender: FDA-Public Use
  Company Number: US-SA-2018SA318003

PATIENT
  Age: 72 Year
  Sex: Male

DRUGS (1)
  1. TOUJEO [Suspect]
     Active Substance: INSULIN GLARGINE
     Indication: DIABETES MELLITUS
     Dosage: 45 U, BID
     Dates: start: 20181114

REACTIONS (4)
  - Incorrect dose administered [Unknown]
  - Product administration error [Unknown]
  - Product use issue [Unknown]
  - Device operational issue [Unknown]
